FAERS Safety Report 19888034 (Version 1)
Quarter: 2021Q3

REPORT INFORMATION
  Report Type: Spontaneous
  Country: US (occurrence: US)
  Receive Date: 20210928
  Receipt Date: 20210928
  Transmission Date: 20211014
  Serious: Yes (Death, Other)
  Sender: FDA-Public Use
  Company Number: US-SA-2021SA317366

PATIENT
  Age: 73 Year
  Sex: Female

DRUGS (2)
  1. ZANTAC [Suspect]
     Active Substance: RANITIDINE HYDROCHLORIDE
     Indication: DYSPEPSIA
  2. ZANTAC [Suspect]
     Active Substance: RANITIDINE HYDROCHLORIDE
     Indication: GASTROOESOPHAGEAL REFLUX DISEASE
     Dosage: 150 MG, QD
     Dates: start: 199501, end: 202001

REACTIONS (14)
  - Breast cancer female [Fatal]
  - Ovarian cancer stage IV [Fatal]
  - Colorectal cancer stage IV [Fatal]
  - Oesophageal carcinoma [Fatal]
  - Renal cancer stage IV [Fatal]
  - Lung carcinoma cell type unspecified stage IV [Fatal]
  - Bone cancer [Fatal]
  - Hepatic cancer stage IV [Fatal]
  - Pancreatic carcinoma stage IV [Fatal]
  - Gallbladder cancer stage IV [Fatal]
  - Gastrointestinal carcinoma [Fatal]
  - Gastric cancer stage IV [Fatal]
  - Bladder cancer stage IV [Fatal]
  - Small intestine carcinoma stage IV [Fatal]

NARRATIVE: CASE EVENT DATE: 20151201
